FAERS Safety Report 6474296-9 (Version None)
Quarter: 2009Q4

REPORT INFORMATION
  Report Type: 
  Country: None (occurrence: None)
  Receive Date: 20091204
  Receipt Date: 20091202
  Transmission Date: 20100525
  Serious: Yes (Life-Threatening)
  Sender: FDA-Public Use
  Company Number: PHHY2009BR53183

PATIENT
  Age: 27 Year
  Sex: Female

DRUGS (1)
  1. PARLODEL [Suspect]
     Indication: LACTATION INHIBITION THERAPY
     Dosage: 2.5 MG A DAY
     Route: 048
     Dates: start: 20091202

REACTIONS (7)
  - ABDOMINAL PAIN UPPER [None]
  - BLOOD PRESSURE DECREASED [None]
  - DIARRHOEA [None]
  - FEELING ABNORMAL [None]
  - HEADACHE [None]
  - NAUSEA [None]
  - PARAESTHESIA [None]
